FAERS Safety Report 12175616 (Version 2)
Quarter: 2016Q2

REPORT INFORMATION
  Report Type: Spontaneous
  Country: BR (occurrence: BR)
  Receive Date: 20160314
  Receipt Date: 20160610
  Transmission Date: 20160815
  Serious: Yes (Hospitalization, Other)
  Sender: FDA-Public Use
  Company Number: BR-PFIZER INC-2016147894

PATIENT
  Age: 53 Year
  Sex: Female
  Weight: 85 kg

DRUGS (14)
  1. TRAMAL [Concomitant]
     Active Substance: TRAMADOL
     Indication: PAIN
     Dosage: 2 TABLETS PER DAY
     Dates: start: 201511, end: 201603
  2. XALATAN [Suspect]
     Active Substance: LATANOPROST
     Indication: INTRAOCULAR PRESSURE INCREASED
     Dosage: 1 DROP PER DAY IN THE LEFT EYE
     Route: 047
     Dates: start: 2015
  3. LYRICA [Suspect]
     Active Substance: PREGABALIN
     Indication: PAIN
     Dosage: 2 TABLETS OF 75MG PER DAY
     Dates: start: 201508
  4. LYRICA [Suspect]
     Active Substance: PREGABALIN
     Indication: EHLERS-DANLOS SYNDROME
     Dosage: 4 TABLETS OF 75MG PER DAY OR 300 MG, 2 TABLETS OF 150MG PER DAY
     Dates: end: 201603
  5. HYLO-GEL [Concomitant]
     Indication: EYE LUBRICATION THERAPY
     Dosage: 2X/DAY
  6. SYSTANE (HYPROMELLOSE 2910 (4000 MPA.S)) [Concomitant]
     Active Substance: HYPROMELLOSE 2910 (4000 MPA.S)
     Indication: EYE LUBRICATION THERAPY
     Dosage: 6X/DAY
  7. CYMBALTA [Concomitant]
     Active Substance: DULOXETINE HYDROCHLORIDE
     Indication: PAIN
     Dosage: 2 TABLETS PER DAY
  8. AMITRIPTYLINE [Concomitant]
     Active Substance: AMITRIPTYLINE
     Indication: SLEEP DISORDER
     Dosage: ^1^ PER DAY
     Dates: end: 201603
  9. OXYCONTIN [Concomitant]
     Active Substance: OXYCODONE HYDROCHLORIDE
     Indication: PAIN
     Dosage: 2 TABLETS PER DAY
     Dates: start: 2015
  10. AZORGA [Concomitant]
     Active Substance: BRINZOLAMIDE\TIMOLOL MALEATE
     Dosage: 2 DROPS PER DAY
  11. MIOSAN [Concomitant]
     Active Substance: CYCLOBENZAPRINE
     Indication: PAIN
     Dosage: UNK
     Dates: start: 201511, end: 201603
  12. RIVOTRIL [Concomitant]
     Active Substance: CLONAZEPAM
     Indication: SLEEP DISORDER
     Dosage: UNK
  13. ALPHAGAN P [Concomitant]
     Active Substance: BRIMONIDINE TARTRATE
     Dosage: 2 DROPS PER DAY
  14. REUQUINOL [Concomitant]
     Active Substance: HYDROXYCHLOROQUINE SULFATE
     Indication: SJOGREN^S SYNDROME
     Dosage: UNK
     Dates: start: 2013

REACTIONS (10)
  - Infection [Not Recovered/Not Resolved]
  - Pain [Recovered/Resolved]
  - Urinary retention [Recovered/Resolved]
  - Gastrointestinal motility disorder [Recovered/Resolved]
  - Intervertebral disc protrusion [Not Recovered/Not Resolved]
  - Mobility decreased [Not Recovered/Not Resolved]
  - Drug effect incomplete [Unknown]
  - Drug ineffective [Recovered/Resolved]
  - Cauda equina syndrome [Recovered/Resolved]
  - Collagen disorder [Not Recovered/Not Resolved]

NARRATIVE: CASE EVENT DATE: 2015
